FAERS Safety Report 19188344 (Version 1)
Quarter: 2021Q2

REPORT INFORMATION
  Report Type: Spontaneous
  Country: US (occurrence: US)
  Receive Date: 20210427
  Receipt Date: 20210427
  Transmission Date: 20210717
  Serious: Yes (Other)
  Sender: FDA-Public Use
  Company Number: None

PATIENT
  Age: 39 Year
  Sex: Female
  Weight: 61.23 kg

DRUGS (2)
  1. PARAGARD T 380A [Concomitant]
     Active Substance: COPPER
     Dates: start: 20150402
  2. PARAGARD T 380A [Suspect]
     Active Substance: COPPER
     Route: 015

REACTIONS (1)
  - Device expulsion [None]

NARRATIVE: CASE EVENT DATE: 20210427
